FAERS Safety Report 15667763 (Version 1)
Quarter: 2018Q4

REPORT INFORMATION
  Report Type: Spontaneous
  Country: DE (occurrence: DE)
  Receive Date: 20181128
  Receipt Date: 20181128
  Transmission Date: 20190205
  Serious: Yes (Congenital Anomaly)
  Sender: FDA-Public Use
  Company Number: DE-ANIPHARMA-2018-DE-000196

PATIENT
  Sex: Male
  Weight: 1 kg

DRUGS (6)
  1. PENICILLIN NOS [Concomitant]
     Active Substance: PENICILLIN
     Dosage: UNK
     Route: 050
  2. NITRENDIPINE [Suspect]
     Active Substance: NITRENDIPINE
     Dosage: 10 [MG/D (0-0-1) ]
     Route: 050
  3. BISOPROLOL [Suspect]
     Active Substance: BISOPROLOL
     Dosage: 7.5 [MG/D ]/ 2.5-0-5.0 MG/D
     Route: 050
  4. METHYLDOPA. [Concomitant]
     Active Substance: METHYLDOPA
     Dosage: 250 MG DAILY
     Route: 050
  5. L-THYROXIN [Concomitant]
     Active Substance: LEVOTHYROXINE SODIUM
     Dosage: 112.5 UG/INHAL DAILY
     Route: 050
     Dates: start: 20170708, end: 20180228
  6. CANDESARTAN. [Suspect]
     Active Substance: CANDESARTAN
     Indication: HYPERTENSION
     Dosage: 8 MG DAILY
     Route: 050
     Dates: start: 20170708, end: 20171128

REACTIONS (4)
  - Renal cyst [Not Recovered/Not Resolved]
  - Congenital inguinal hernia [Recovered/Resolved]
  - Hypoacusis [Not Recovered/Not Resolved]
  - Small for dates baby [Recovering/Resolving]

NARRATIVE: CASE EVENT DATE: 20180228
